FAERS Safety Report 7786548-0 (Version None)
Quarter: 2011Q3

REPORT INFORMATION
  Report Type: 
  Country: None (occurrence: None)
  Receive Date: 20110929
  Receipt Date: 20110831
  Transmission Date: 20111222
  Serious: Yes (Hospitalization)
  Sender: FDA-Public Use
  Company Number: JP-GLAXOSMITHKLINE-B0744467A

PATIENT
  Sex: Female

DRUGS (10)
  1. DORAL [Concomitant]
     Route: 048
  2. DEPAS [Concomitant]
     Route: 048
  3. TRAZODONE HYDROCHLORIDE [Concomitant]
     Indication: DEPRESSION
     Dosage: 50MG PER DAY
  4. SILECE [Concomitant]
     Route: 048
  5. ZOLPIDEM [Concomitant]
     Route: 048
  6. CYMBALTA [Concomitant]
     Route: 048
  7. LAMICTAL [Suspect]
     Indication: DEPRESSION
     Dosage: 50MG PER DAY
     Dates: start: 20110810, end: 20110826
  8. PAXIL [Concomitant]
     Indication: DEPRESSION
     Dosage: 20MG PER DAY
  9. MYONAL [Concomitant]
     Indication: MIGRAINE
     Dosage: 50MG PER DAY
  10. LEVOTHYROXINE SODIUM [Concomitant]
     Route: 048

REACTIONS (6)
  - STOMATITIS [None]
  - PYREXIA [None]
  - MUCOSAL EROSION [None]
  - ERYTHEMA [None]
  - OROPHARYNGEAL PAIN [None]
  - RASH [None]
